FAERS Safety Report 7683235-4 (Version None)
Quarter: 2011Q3

REPORT INFORMATION
  Report Type: 
  Country: None (occurrence: None)
  Receive Date: 20110815
  Receipt Date: 20110808
  Transmission Date: 20111222
  Serious: Yes (Other)
  Sender: FDA-Public Use
  Company Number: US-CEPHALON-US017805

PATIENT

DRUGS (2)
  1. PROVIGIL [Suspect]
     Indication: SLEEP APNOEA SYNDROME
     Route: 048
  2. KLONOPIN [Suspect]
     Indication: CONVULSION
     Route: 065

REACTIONS (2)
  - DRUG INTERACTION [None]
  - DISSOCIATION [None]
